FAERS Safety Report 14690849 (Version 1)
Quarter: 2018Q1

REPORT INFORMATION
  Report Type: Report from Study
  Country: US (occurrence: US)
  Receive Date: 20180328
  Receipt Date: 20180328
  Transmission Date: 20180509
  Serious: Yes (Other)
  Sender: FDA-Public Use
  Company Number: US-TAKEDA-2017TUS024450

PATIENT
  Sex: Female

DRUGS (2)
  1. PONATINIB [Suspect]
     Active Substance: PONATINIB
     Indication: CHRONIC MYELOID LEUKAEMIA
     Dosage: 30 MG, QD
     Route: 048
     Dates: start: 20171027
  2. PONATINIB [Suspect]
     Active Substance: PONATINIB
     Dosage: 15 MG, QOD
     Route: 048

REACTIONS (13)
  - Renal failure [Unknown]
  - White blood cell count increased [Unknown]
  - Dementia [Unknown]
  - Pain in extremity [Unknown]
  - Dry mouth [Unknown]
  - Thrombocytopenia [Unknown]
  - Anaemia [Unknown]
  - Subdural haematoma [Unknown]
  - Memory impairment [Unknown]
  - Insomnia [Unknown]
  - Haematochezia [Unknown]
  - Blood pressure increased [Unknown]
  - Pancytopenia [Unknown]
